FAERS Safety Report 7901065-2 (Version None)
Quarter: 2011Q4

REPORT INFORMATION
  Report Type: 
  Country: None (occurrence: None)
  Receive Date: 20111108
  Receipt Date: 20111101
  Transmission Date: 20120403
  Serious: Yes (Other)
  Sender: FDA-Public Use
  Company Number: US-ELI_LILLY_AND_COMPANY-US201111000946

PATIENT
  Age: 77 Year
  Sex: Male

DRUGS (6)
  1. PEMETREXED [Suspect]
     Indication: LUNG ADENOCARCINOMA STAGE IV
     Dosage: 500 MG/M2, UNK
  2. CARBOPLATIN [Concomitant]
     Indication: LUNG ADENOCARCINOMA STAGE IV
  3. LOSARTAN [Concomitant]
  4. AMLODIPINE [Concomitant]
  5. BEVACIZUMAB [Concomitant]
     Indication: LUNG ADENOCARCINOMA STAGE IV
  6. PEMETREXED [Suspect]
     Dosage: 375 MG/M2, UNK

REACTIONS (4)
  - NEPHROPATHY TOXIC [None]
  - ARTERIOSCLEROSIS [None]
  - TUBULOINTERSTITIAL NEPHRITIS [None]
  - RENAL IMPAIRMENT [None]
